FAERS Safety Report 5890769-1 (Version None)
Quarter: 2008Q3

REPORT INFORMATION
  Report Type: 
  Country: None (occurrence: None)
  Receive Date: 20080922
  Receipt Date: 20080912
  Transmission Date: 20090109
  Serious: Yes (Hospitalization)
  Sender: FDA-Public Use
  Company Number: PHHO2008DE08262

PATIENT
  Sex: Male

DRUGS (4)
  1. SANDIMMUNE [Suspect]
     Dosage: 65 MG DAILY
     Route: 048
     Dates: start: 20080629
  2. NO TREATMENT RECEIVED NOMED [Suspect]
     Indication: HEART TRANSPLANT
  3. CELLCEPT [Suspect]
     Dosage: 2 G DAILY
     Route: 048
     Dates: start: 20080618
  4. DECORTIN [Concomitant]
     Dosage: UNK
     Dates: start: 20080624

REACTIONS (4)
  - FUNGAL INFECTION [None]
  - IMPAIRED HEALING [None]
  - INCISIONAL DRAINAGE [None]
  - MEDIASTINITIS [None]
